FAERS Safety Report 18987995 (Version 3)
Quarter: 2021Q1

REPORT INFORMATION
  Report Type: Spontaneous
  Country: CN (occurrence: CN)
  Receive Date: 20210309
  Receipt Date: 20210325
  Transmission Date: 20210420
  Serious: Yes (Death, Hospitalization, Other)
  Sender: FDA-Public Use
  Company Number: CN-009507513-2103CHN001391

PATIENT
  Age: 67 Year
  Sex: Male

DRUGS (3)
  1. CARBOPLATIN. [Concomitant]
     Active Substance: CARBOPLATIN
     Indication: LARGE CELL LUNG CANCER METASTATIC
     Dosage: UNK
     Dates: start: 201905
  2. PEMBROLIZUMAB. [Suspect]
     Active Substance: PEMBROLIZUMAB
     Indication: LARGE CELL LUNG CANCER METASTATIC
     Dosage: 200 MILLIGRAM
     Dates: start: 201905
  3. PEMETREXED DISODIUM [Concomitant]
     Active Substance: PEMETREXED DISODIUM
     Indication: LARGE CELL LUNG CANCER METASTATIC
     Dosage: 900 MILLIGRAM
     Dates: start: 201905

REACTIONS (6)
  - Immune-mediated myocarditis [Fatal]
  - Myasthenia gravis crisis [Fatal]
  - Immune-mediated myositis [Fatal]
  - Immune-mediated pneumonitis [Fatal]
  - Hepatic function abnormal [Fatal]
  - Off label use [Unknown]

NARRATIVE: CASE EVENT DATE: 2019
